FAERS Safety Report 9532959 (Version 1)
Quarter: 2013Q2

REPORT INFORMATION
  Report Type: Spontaneous
  Country: US (occurrence: None)
  Receive Date: 20130418
  Receipt Date: 20130418
  Transmission Date: 20140414
  Serious: No
  Sender: FDA-Public Use
  Company Number: 2012PROUSA02359

PATIENT
  Age: 69 Year
  Sex: Male
  Weight: 99.2 kg

DRUGS (5)
  1. PROVENGE (SIPULEUCEL-T) SUSPENSION, 250ML [Suspect]
     Indication: PROSTATE CANCER METASTATIC
     Dosage: 250ML, SINGLE, INTRAVENOUS
     Route: 042
     Dates: start: 20121101, end: 20121101
  2. ASPIRIN (ACETYLSALICYCLIC ACID) [Concomitant]
  3. ELIGARD (LEUPRORELIN ACETATE) [Concomitant]
  4. DIAZEPAM (DIAZEPAM) [Concomitant]
  5. HYDROCHLOROTHIAZIDE (HYDROCHLOROTHIAZIDE) [Concomitant]

REACTIONS (4)
  - Balance disorder [None]
  - Fatigue [None]
  - Dizziness [None]
  - Sinus headache [None]
